FAERS Safety Report 14627238 (Version 3)
Quarter: 2019Q3

REPORT INFORMATION
  Report Type: Spontaneous
  Country: FR (occurrence: FR)
  Receive Date: 20180312
  Receipt Date: 20190913
  Transmission Date: 20191004
  Serious: Yes (Hospitalization, Other)
  Sender: FDA-Public Use
  Company Number: FR-MYLANLABS-2018M1004595

PATIENT
  Age: 48 Year
  Sex: Male

DRUGS (6)
  1. DALFAMPRIDINE. [Interacting]
     Active Substance: DALFAMPRIDINE
     Indication: MULTIPLE SCLEROSIS
     Dosage: UNK UNK, BID
     Route: 065
  2. CYCLOPHOSPHAMIDE. [Concomitant]
     Active Substance: CYCLOPHOSPHAMIDE
     Indication: SECONDARY PROGRESSIVE MULTIPLE SCLEROSIS
     Dosage: UNK UNK, QM
     Route: 042
     Dates: start: 2012, end: 2014
  3. BACLOFEN. [Interacting]
     Active Substance: BACLOFEN
     Indication: RELAPSING-REMITTING MULTIPLE SCLEROSIS
  4. DALFAMPRIDINE. [Interacting]
     Active Substance: DALFAMPRIDINE
     Indication: RELAPSING-REMITTING MULTIPLE SCLEROSIS
     Dosage: 10 MG,TID
     Route: 065
  5. DAL [Interacting]
     Active Substance: DESOGESTREL\ETHINYL ESTRADIOL
     Indication: MULTIPLE SCLEROSIS
     Dosage: 10 MG TID
  6. BACLOFEN. [Suspect]
     Active Substance: BACLOFEN
     Indication: MULTIPLE SCLEROSIS
     Dosage: 20 MG, TID
     Route: 065

REACTIONS (9)
  - Drug interaction [Unknown]
  - Central nervous system lesion [Unknown]
  - Generalised tonic-clonic seizure [Recovered/Resolved]
  - Cerebral atrophy [Unknown]
  - Status epilepticus [Unknown]
  - Myoclonus [Unknown]
  - Bladder disorder [Unknown]
  - Cerebellar syndrome [Unknown]
  - Paraparesis [Unknown]
